FAERS Safety Report 9662322 (Version 2)
Quarter: 2013Q4

REPORT INFORMATION
  Report Type: Spontaneous
  Country: US (occurrence: US)
  Receive Date: 20131031
  Receipt Date: 20131031
  Transmission Date: 20140711
  Serious: No
  Sender: FDA-Public Use
  Company Number: US-PURDUE-USA-2010-0062251

PATIENT
  Age: 53 Year
  Sex: Male
  Weight: 93.42 kg

DRUGS (6)
  1. OXYCONTIN (NDA 22-272) [Suspect]
     Indication: SPINAL LAMINECTOMY
     Dosage: 160 MG, BID
     Dates: start: 201008
  2. OXYCONTIN (NDA 22-272) [Suspect]
     Indication: SCIATIC NERVE INJURY
  3. OXYCONTIN (NDA 22-272) [Suspect]
     Indication: KNEE OPERATION
  4. OXYCONTIN (NDA 22-272) [Suspect]
     Indication: ARTHRITIS
  5. OXYCONTIN (NDA 22-272) [Suspect]
     Indication: SHOULDER OPERATION
  6. ROXICODONE [Concomitant]
     Indication: PRODUCT USED FOR UNKNOWN INDICATION
     Dosage: 30 MG, UNK

REACTIONS (10)
  - Drug withdrawal syndrome [Unknown]
  - Aggression [Unknown]
  - Fatigue [Unknown]
  - Pain [Unknown]
  - Intentional drug misuse [Unknown]
  - Feeling hot [Unknown]
  - Feeling cold [Unknown]
  - Inadequate analgesia [Unknown]
  - Mood altered [Not Recovered/Not Resolved]
  - Unevaluable event [Not Recovered/Not Resolved]
